FAERS Safety Report 4475479-X (Version None)
Quarter: 2004Q4

REPORT INFORMATION
  Report Type: 
  Country: None (occurrence: None)
  Receive Date: 20041015
  Receipt Date: 20040907
  Transmission Date: 20050328
  Serious: Yes (Hospitalization)
  Sender: FDA-Public Use
  Company Number: IT-BRISTOL-MYERS SQUIBB COMPANY-12693727

PATIENT
  Age: 40 Year
  Sex: Male

DRUGS (3)
  1. ARIPIPRAZOLE [Suspect]
     Indication: SCHIZOPHRENIA
     Dosage: 15MG 07-MAR-04 TO 11-JUL-04, 30MG 12-JUL-04 TO 26-JUL-04 (INTERRUPTED).
     Route: 048
     Dates: start: 20040307
  2. DEPAKENE [Concomitant]
     Dates: start: 20040723
  3. RIVOTRIL [Concomitant]
     Dates: start: 20040723

REACTIONS (1)
  - SCHIZOPHRENIA [None]
